FAERS Safety Report 23981467 (Version 1)
Quarter: 2024Q2

REPORT INFORMATION
  Report Type: Spontaneous
  Country: PK (occurrence: PK)
  Receive Date: 20240617
  Receipt Date: 20240617
  Transmission Date: 20240717
  Serious: Yes (Other)
  Sender: FDA-Public Use
  Company Number: PK-PFIZER INC-2020233385

PATIENT
  Age: 30 Year
  Sex: Male

DRUGS (16)
  1. ENBREL [Suspect]
     Active Substance: BENZYL ALCOHOL\ETANERCEPT
     Indication: Ankylosing spondylitis
     Dosage: 50 MILLIGRAM, QWK
     Route: 058
     Dates: end: 2020
  2. ENBREL [Suspect]
     Active Substance: BENZYL ALCOHOL\ETANERCEPT
     Indication: Juvenile idiopathic arthritis
     Dosage: 50 MILLIGRAM, QWK
     Route: 058
  3. ENBREL [Suspect]
     Active Substance: BENZYL ALCOHOL\ETANERCEPT
     Indication: Juvenile idiopathic arthritis
  4. MEBEVERINE HYDROCHLORIDE [Concomitant]
     Active Substance: MEBEVERINE HYDROCHLORIDE
     Dosage: 135 MILLIGRAM, TID
  5. DELTACORTRIL [Concomitant]
     Active Substance: PREDNISOLONE
     Dosage: 10 MILLIGRAM, QD
  6. LACOLEP [Concomitant]
     Dosage: 150 MILLIGRAM, QD
  7. LYTA [Concomitant]
     Dosage: 20 MG, ALTERNATE DAY (0+0+1 ALTERNATE DAYS THEN AFTER 10 DAYS STOP)
  8. NUBEROL [Concomitant]
     Dosage: UNK
  9. QALSAN D [Concomitant]
     Dosage: 1 DOSAGE FORM, QD
  10. Risek [Concomitant]
     Dosage: 20 MILLIGRAM, QD
  11. Risek [Concomitant]
     Dosage: 40 MILLIGRAM, QD
  12. SULFASALAZINE [Concomitant]
     Active Substance: SULFASALAZINE
     Dosage: 1000 MILLIGRAM, BID
  13. ETORICOXIB [Concomitant]
     Active Substance: ETORICOXIB
     Dosage: 90 MILLIGRAM, QD
  14. NALBIN [Concomitant]
     Dosage: UNK (AS AN WHEN (MAXIMUM ONE A DAY FOR NOW))
  15. TRAMADOL [Concomitant]
     Active Substance: TRAMADOL\TRAMADOL HYDROCHLORIDE
     Dosage: 50 MILLIGRAM, BID
  16. ACLASTA [Concomitant]
     Active Substance: ZOLEDRONIC ACID
     Dosage: UNK

REACTIONS (5)
  - Spinal compression fracture [Unknown]
  - Sacral pain [Unknown]
  - Abdominal pain [Unknown]
  - Weight decreased [Unknown]
  - Blood pressure increased [Unknown]
